FAERS Safety Report 18911389 (Version 2)
Quarter: 2021Q1

REPORT INFORMATION
  Report Type: Spontaneous
  Country: FR (occurrence: FR)
  Receive Date: 20210218
  Receipt Date: 20210312
  Transmission Date: 20210420
  Serious: No
  Sender: FDA-Public Use
  Company Number: FR-PFIZER INC-2021120609

PATIENT
  Age: 12 Month
  Sex: Male

DRUGS (1)
  1. PIVALONE (TIXOCORTOL PRIVALATE) [Suspect]
     Active Substance: TIXOCORTOL PIVALATE
     Dosage: UNK
     Dates: start: 20210204

REACTIONS (3)
  - Accidental exposure to product [Recovered/Resolved]
  - Swelling of eyelid [Recovered/Resolved]
  - Eye swelling [Recovered/Resolved]

NARRATIVE: CASE EVENT DATE: 20210204
